FAERS Safety Report 21417706 (Version 2)
Quarter: 2022Q4

REPORT INFORMATION
  Report Type: Spontaneous
  Country: US (occurrence: US)
  Receive Date: 20221006
  Receipt Date: 20221021
  Transmission Date: 20230112
  Serious: Yes (Hospitalization)
  Sender: FDA-Public Use
  Company Number: US-TEVA-2022-US-2078746

PATIENT
  Age: 7 Year
  Sex: Male

DRUGS (2)
  1. CEPHALEXIN [Suspect]
     Active Substance: CEPHALEXIN
     Indication: Arthritis bacterial
     Dosage: RECEIVED A 6-WEEK COURSE
     Route: 065
  2. CEPHALEXIN [Suspect]
     Active Substance: CEPHALEXIN
     Indication: Osteomyelitis

REACTIONS (2)
  - Arthritis reactive [Recovered/Resolved]
  - Clostridium difficile colitis [Recovered/Resolved]
